FAERS Safety Report 12648616 (Version 1)
Quarter: 2016Q3

REPORT INFORMATION
  Report Type: Spontaneous
  Country: NL (occurrence: NL)
  Receive Date: 20160812
  Receipt Date: 20160812
  Transmission Date: 20161109
  Serious: Yes (Hospitalization)
  Sender: FDA-Public Use
  Company Number: PHHY2016NL109006

PATIENT
  Sex: Male

DRUGS (1)
  1. METOPROLOLSUCCINAAT SANDOZ RETARD [Suspect]
     Active Substance: METOPROLOL SUCCINATE
     Indication: PRODUCT USED FOR UNKNOWN INDICATION
     Dosage: HALF THE TABLET OF 200MG, BID
     Route: 065

REACTIONS (2)
  - Expired product administered [Unknown]
  - Incorrect product storage [Unknown]
